FAERS Safety Report 14656340 (Version 2)
Quarter: 2018Q2

REPORT INFORMATION
  Report Type: Report from Study
  Country: GB (occurrence: GB)
  Receive Date: 20180319
  Receipt Date: 20180628
  Transmission Date: 20180711
  Serious: Yes (Other)
  Sender: FDA-Public Use
  Company Number: GB-PFIZER INC-2018103887

PATIENT
  Age: 67 Year
  Sex: Female
  Weight: 62.6 kg

DRUGS (5)
  1. BINIMETINIB [Suspect]
     Active Substance: BINIMETINIB
     Indication: COLORECTAL CANCER
     Dosage: 30 MG, TWICE PER DAY
     Route: 048
     Dates: start: 20180307, end: 20180308
  2. COSMOCOL [Concomitant]
     Indication: IRRITABLE BOWEL SYNDROME
     Dosage: 1 SACHET ONCE A DAILY
     Route: 048
     Dates: start: 20171110, end: 20180308
  3. PARACETAMOL [Concomitant]
     Active Substance: ACETAMINOPHEN
     Indication: PAIN
     Dosage: 1000 MG, EVERY 4 HOURS
     Route: 048
     Dates: start: 20171110
  4. PERINDOPRIL [Concomitant]
     Active Substance: PERINDOPRIL
     Indication: HYPERTENSION
     Dosage: 8 MG, 1X/DAY
     Route: 048
     Dates: start: 20180215, end: 20180308
  5. CRIZOTINIB [Suspect]
     Active Substance: CRIZOTINIB
     Indication: COLORECTAL CANCER
     Dosage: 250 MG, ONCE PER DAY
     Route: 048
     Dates: start: 20180307, end: 20180308

REACTIONS (1)
  - Chorioretinopathy [Recovered/Resolved]

NARRATIVE: CASE EVENT DATE: 20180308
